FAERS Safety Report 7825894-9 (Version None)
Quarter: 2011Q4

REPORT INFORMATION
  Report Type: 
  Country: None (occurrence: None)
  Receive Date: 20111019
  Receipt Date: 20110921
  Transmission Date: 20120403
  Serious: Yes (Hospitalization, Congenital Anomaly)
  Sender: FDA-Public Use
  Company Number: DE-ROCHE-1003701

PATIENT
  Sex: Female
  Weight: 70 kg

DRUGS (4)
  1. LEFLUNOMIDE [Suspect]
     Indication: RHEUMATOID ARTHRITIS
     Route: 048
     Dates: start: 20030101, end: 20100101
  2. CANDESARTAN CILEXETIL [Concomitant]
     Indication: HYPERTENSION
     Dates: start: 20100301
  3. LEVOTHYROXINE SODIUM [Concomitant]
     Indication: THYROIDECTOMY
     Route: 048
     Dates: start: 20020101
  4. ACTEMRA [Suspect]
     Indication: RHEUMATOID ARTHRITIS
     Route: 042
     Dates: start: 20091127, end: 20100224

REACTIONS (6)
  - DEVICE RELATED INFECTION [None]
  - JOINT EFFUSION [None]
  - GAMMA-GLUTAMYLTRANSFERASE INCREASED [None]
  - OSTEOARTHRITIS [None]
  - DRUG INEFFECTIVE [None]
  - LUNG NEOPLASM [None]
